FAERS Safety Report 9565910 (Version 2)
Quarter: 2013Q4

REPORT INFORMATION
  Report Type: Spontaneous
  Country: IT (occurrence: IT)
  Receive Date: 20130930
  Receipt Date: 20131114
  Transmission Date: 20140711
  Serious: Yes (Hospitalization)
  Sender: FDA-Public Use
  Company Number: IT-BAYER-2013-116151

PATIENT
  Age: 76 Year
  Sex: Female

DRUGS (5)
  1. NEXAVAR [Suspect]
     Indication: RENAL CANCER METASTATIC
     Dosage: DAILY DOSE 400 MG
     Route: 048
     Dates: start: 20130726, end: 20130815
  2. RANITIDINE [Concomitant]
     Indication: TRANSIENT ISCHAEMIC ATTACK
     Dosage: DAILY DOSE 300 MG
     Route: 048
  3. CLEXANE [Concomitant]
     Indication: TRANSIENT ISCHAEMIC ATTACK
     Dosage: DAILY DOSE 4000 IU
     Route: 058
     Dates: start: 201303
  4. CARDIOASPIRIN [Concomitant]
     Indication: TRANSIENT ISCHAEMIC ATTACK
     Dosage: DAILY DOSE 100 MG
     Route: 048
  5. INSULIN [Concomitant]
     Indication: DIABETES MELLITUS

REACTIONS (3)
  - Transient ischaemic attack [Not Recovered/Not Resolved]
  - Motor dysfunction [Unknown]
  - Dysarthria [Unknown]
